FAERS Safety Report 5358256-7 (Version None)
Quarter: 2007Q2

REPORT INFORMATION
  Report Type: 
  Country: None (occurrence: None)
  Receive Date: 20070530
  Receipt Date: 20061120
  Transmission Date: 20071010
  Serious: Yes (Hospitalization)
  Sender: FDA-Public Use
  Company Number: US200603002419

PATIENT
  Age: 37 Year
  Sex: Male
  Weight: 86.2 kg

DRUGS (2)
  1. ZYPREXA [Suspect]
     Indication: DEPRESSION
     Dosage: SEE IMAGE
     Dates: start: 19980101, end: 20000101
  2. BUPROPION HCL [Concomitant]

REACTIONS (2)
  - BLOOD CHOLESTEROL ABNORMAL [None]
  - DIABETES MELLITUS [None]
